FAERS Safety Report 16353495 (Version 1)
Quarter: 2019Q2

REPORT INFORMATION
  Report Type: Spontaneous
  Country: US (occurrence: US)
  Receive Date: 20190524
  Receipt Date: 20190524
  Transmission Date: 20190711
  Serious: Yes (Hospitalization)
  Sender: FDA-Public Use
  Company Number: US-VERTEX PHARMACEUTICALS-2019-004645

PATIENT
  Age: 15 Year
  Sex: Female

DRUGS (13)
  1. CAYSTON [Concomitant]
     Active Substance: AZTREONAM
  2. INSULIN [Concomitant]
     Active Substance: INSULIN NOS
     Dosage: UNK, QD
  3. HYPERSAL [Concomitant]
     Active Substance: SODIUM CHLORIDE
  4. CREON [Concomitant]
     Active Substance: PANCRELIPASE AMYLASE\PANCRELIPASE LIPASE\PANCRELIPASE PROTEASE
  5. COLISTIMETHATE                     /00013204/ [Concomitant]
     Active Substance: COLISTIMETHATE SODIUM
  6. CLINDAMYCIN. [Concomitant]
     Active Substance: CLINDAMYCIN
  7. ESOMEPRAZOLE. [Concomitant]
     Active Substance: ESOMEPRAZOLE MAGNESIUM
  8. POLYETHYLENE GLYCOL [Concomitant]
     Active Substance: POLYETHYLENE GLYCOLS
  9. SYMDEKO [Suspect]
     Active Substance: IVACAFTOR\TEZACAFTOR
     Indication: CYSTIC FIBROSIS
     Dosage: 100MG TEZACAFTOR/150MG IVACAFTOR AM; 150MG IVACAFTOR PM
     Route: 048
     Dates: start: 201806
  10. VITAMIN A                          /00056001/ [Concomitant]
     Active Substance: RETINOL
  11. PULMOZYME [Concomitant]
     Active Substance: DORNASE ALFA
  12. ALBUTEROL                          /00139501/ [Concomitant]
     Active Substance: ALBUTEROL
  13. AZITHROMYCIN ANHYDROUS. [Concomitant]
     Active Substance: AZITHROMYCIN ANHYDROUS

REACTIONS (1)
  - Infective pulmonary exacerbation of cystic fibrosis [Unknown]

NARRATIVE: CASE EVENT DATE: 20190125
